FAERS Safety Report 8216996-6 (Version None)
Quarter: 2012Q1

REPORT INFORMATION
  Report Type: 
  Country: None (occurrence: None)
  Receive Date: 20120319
  Receipt Date: 20120308
  Transmission Date: 20120608
  Serious: Yes (Hospitalization)
  Sender: FDA-Public Use
  Company Number: NL-BIOGENIDEC-2012BI005957

PATIENT
  Age: 42 Year
  Sex: Female

DRUGS (2)
  1. FOLIC ACID [Concomitant]
  2. AVONEX [Suspect]
     Indication: MULTIPLE SCLEROSIS
     Route: 030
     Dates: start: 20070101, end: 20110525

REACTIONS (1)
  - SUBARACHNOID HAEMORRHAGE [None]
